FAERS Safety Report 7733232-5 (Version None)
Quarter: 2011Q3

REPORT INFORMATION
  Report Type: 
  Country: None (occurrence: None)
  Receive Date: 20110907
  Receipt Date: 20101006
  Transmission Date: 20111222
  Serious: No
  Sender: FDA-Public Use
  Company Number: US-BAYER-201036890NA

PATIENT
  Age: 64 Year
  Sex: Male

DRUGS (2)
  1. MAGNEVIST [Suspect]
     Indication: ACOUSTIC NEUROMA
     Dates: start: 20100317, end: 20100317
  2. MAGNEVIST [Suspect]
     Indication: NUCLEAR MAGNETIC RESONANCE IMAGING BRAIN

REACTIONS (5)
  - OROPHARYNGEAL DISCOMFORT [None]
  - NAUSEA [None]
  - THROAT IRRITATION [None]
  - SWOLLEN TONGUE [None]
  - VOMITING [None]
